FAERS Safety Report 12982577 (Version 3)
Quarter: 2016Q4

REPORT INFORMATION
  Report Type: Spontaneous
  Country: DK (occurrence: DK)
  Receive Date: 20161129
  Receipt Date: 20161209
  Transmission Date: 20170207
  Serious: Yes (Death, Hospitalization, Other)
  Sender: FDA-Public Use
  Company Number: PHHY2016DK161342

PATIENT
  Age: 54 Year
  Sex: Male

DRUGS (8)
  1. SERTRALINE [Suspect]
     Active Substance: SERTRALINE HYDROCHLORIDE
     Indication: COMPLETED SUICIDE
     Dosage: 5000 MG, ONCE/SINGLE
     Route: 048
  2. STESOLID [Concomitant]
     Active Substance: DIAZEPAM
     Indication: SEIZURE
     Route: 065
  3. ATROPINE. [Concomitant]
     Active Substance: ATROPINE
     Indication: CARDIAC ARREST
     Route: 065
  4. ISOPRENALINE [Concomitant]
     Active Substance: ISOPROTERENOL HYDROCHLORIDE
     Indication: CARDIAC ARREST
     Route: 065
  5. RAPIFEN [Concomitant]
     Active Substance: ALFENTANIL HYDROCHLORIDE
     Indication: PRODUCT USED FOR UNKNOWN INDICATION
     Dosage: 0.5 MG, UNK
     Route: 065
  6. SUXAMETHONIUM [Concomitant]
     Active Substance: SUCCINYLCHOLINE
     Indication: PRODUCT USED FOR UNKNOWN INDICATION
     Dosage: 100 MG, UNK
     Route: 065
  7. VENLAFAXINE [Suspect]
     Active Substance: VENLAFAXINE HYDROCHLORIDE
     Indication: PRODUCT USED FOR UNKNOWN INDICATION
     Dosage: 1500 MG
     Route: 048
  8. THIOPENTAL [Concomitant]
     Active Substance: THIOPENTAL
     Indication: SEDATION
     Dosage: 50 MG, UNK
     Route: 065

REACTIONS (15)
  - Vomiting [Unknown]
  - Heart rate increased [Unknown]
  - Agitation [Unknown]
  - Flushing [Unknown]
  - Myoclonus [Unknown]
  - Completed suicide [Fatal]
  - Bradycardia [Unknown]
  - Overdose [Fatal]
  - Muscle rigidity [Unknown]
  - Serotonin syndrome [Fatal]
  - Unresponsive to stimuli [Unknown]
  - Seizure [Unknown]
  - Cardiac arrest [Fatal]
  - Blood pressure decreased [Unknown]
  - Tremor [Unknown]
